FAERS Safety Report 6218200-7 (Version None)
Quarter: 2009Q2

REPORT INFORMATION
  Report Type: 
  Country: None (occurrence: None)
  Receive Date: 20090608
  Receipt Date: 20090504
  Transmission Date: 20091009
  Serious: Yes (Death)
  Sender: FDA-Public Use
  Company Number: VN-ROCHE-635488

PATIENT
  Age: 22 Year
  Sex: Female
  Weight: 47.5 kg

DRUGS (1)
  1. OSELTAMIVIR [Suspect]
     Indication: AVIAN INFLUENZA
     Route: 050

REACTIONS (1)
  - RESPIRATORY FAILURE [None]
